FAERS Safety Report 5091980-2 (Version None)
Quarter: 2006Q3

REPORT INFORMATION
  Report Type: 
  Country: None (occurrence: None)
  Receive Date: 20060825
  Receipt Date: 20060811
  Transmission Date: 20061208
  Serious: Yes (Hospitalization)
  Sender: FDA-Public Use
  Company Number: FR200607000296

PATIENT
  Age: 85 Year
  Sex: Female
  Weight: 57 kg

DRUGS (11)
  1. FORTEO [Suspect]
     Indication: OSTEOPOROSIS
     Dosage: 20 UG, DAILY (1/D), SUBCUTANEOUS
     Route: 058
     Dates: start: 20060508
  2. FORTEO [Concomitant]
  3. HYDREA [Concomitant]
  4. IXEL (MILNACIPRAN) [Concomitant]
  5. CORDARONE [Concomitant]
  6. STRESAM (ETIFOXINE) [Concomitant]
  7. DITROPAN [Concomitant]
  8. PREVISCAN (FLUINDIONE) [Concomitant]
  9. TRAMADOL HCL [Concomitant]
  10. DAFALGAN (PARACETAMOL) [Concomitant]
  11. CACIT D3 (CALCIUM CARBONATE, COLECALCIFEROL) [Concomitant]

REACTIONS (2)
  - CEREBRAL ARTERY EMBOLISM [None]
  - TACHYCARDIA [None]
